FAERS Safety Report 13419850 (Version 1)
Quarter: 2017Q2

REPORT INFORMATION
  Report Type: Spontaneous
  Country: US (occurrence: US)
  Receive Date: 20170407
  Receipt Date: 20170407
  Transmission Date: 20170830
  Serious: Yes (Other)
  Sender: FDA-Public Use
  Company Number: US-JNJFOC-20170119605

PATIENT
  Sex: Female

DRUGS (5)
  1. STELARA [Suspect]
     Active Substance: USTEKINUMAB
     Indication: CROHN^S DISEASE
     Route: 058
  2. CALCIUM [Concomitant]
     Active Substance: CALCIUM
     Route: 065
  3. VITAMIN D [Concomitant]
     Active Substance: CHOLECALCIFEROL
     Route: 065
  4. WELLBUTRIN [Concomitant]
     Active Substance: BUPROPION HYDROCHLORIDE
     Route: 065
  5. KLONOPIN [Concomitant]
     Active Substance: CLONAZEPAM
     Route: 065

REACTIONS (2)
  - Crohn^s disease [Unknown]
  - Stress [Unknown]
